FAERS Safety Report 10457150 (Version 2)
Quarter: 2015Q1

REPORT INFORMATION
  Report Type: Spontaneous
  Country: US (occurrence: US)
  Receive Date: 20140916
  Receipt Date: 20150105
  Transmission Date: 20150720
  Serious: No
  Sender: FDA-Public Use
  Company Number: US-GILEAD-2014-0115088

PATIENT
  Age: 37 Year
  Sex: Male

DRUGS (2)
  1. LETAIRIS [Suspect]
     Active Substance: AMBRISENTAN
     Indication: PULMONARY HYPERTENSION
     Route: 065
     Dates: start: 20100119
  2. LETAIRIS [Suspect]
     Active Substance: AMBRISENTAN
     Indication: HEPATITIS B

REACTIONS (1)
  - Hepatic function abnormal [Unknown]
